FAERS Safety Report 20565469 (Version 1)
Quarter: 2022Q1

REPORT INFORMATION
  Report Type: Spontaneous
  Country: US (occurrence: None)
  Receive Date: 20220308
  Receipt Date: 20220308
  Transmission Date: 20220424
  Serious: No
  Sender: FDA-Public Use
  Company Number: 2022A076561

PATIENT
  Age: 877 Month
  Sex: Female
  Weight: 63.5 kg

DRUGS (1)
  1. BUDESONIDE\FORMOTEROL [Suspect]
     Active Substance: BUDESONIDE\FORMOTEROL
     Dosage: 160MCG/4.5MCG, 2 PUFFS TWICE DAILY
     Route: 055
     Dates: start: 20220210

REACTIONS (6)
  - Oropharyngeal discomfort [Unknown]
  - Device difficult to use [Unknown]
  - Intentional device misuse [Unknown]
  - Device use issue [Unknown]
  - Intentional dose omission [Unknown]
  - Device malfunction [Unknown]

NARRATIVE: CASE EVENT DATE: 20220201
